FAERS Safety Report 21249686 (Version 2)
Quarter: 2022Q4

REPORT INFORMATION
  Report Type: Spontaneous
  Country: US (occurrence: US)
  Receive Date: 20220824
  Receipt Date: 20221007
  Transmission Date: 20230113
  Serious: No
  Sender: FDA-Public Use
  Company Number: US-BRISTOL-MYERS SQUIBB COMPANY-2022-095066

PATIENT
  Age: 53 Year
  Sex: Male

DRUGS (3)
  1. POMALYST [Suspect]
     Active Substance: POMALIDOMIDE
     Indication: Plasma cell myeloma
     Dosage: FREQUENCY- DAILY
     Route: 048
     Dates: start: 20220721
  2. POMALYST [Suspect]
     Active Substance: POMALIDOMIDE
     Route: 065
  3. POMALYST [Suspect]
     Active Substance: POMALIDOMIDE
     Route: 048
     Dates: start: 20220719

REACTIONS (2)
  - Drug intolerance [Unknown]
  - Rash [Unknown]
